FAERS Safety Report 6361978-2 (Version None)
Quarter: 2009Q3

REPORT INFORMATION
  Report Type: 
  Country: None (occurrence: None)
  Receive Date: 20090918
  Receipt Date: 20090909
  Transmission Date: 20100115
  Serious: Yes (Other)
  Sender: FDA-Public Use
  Company Number: AU-WYE-G04403609

PATIENT
  Age: 26 Year
  Sex: Male

DRUGS (1)
  1. PRISTIQ [Suspect]
     Indication: DEPRESSION
     Dosage: 1 X 50MG TABLET
     Route: 048
     Dates: start: 20090907, end: 20090907

REACTIONS (5)
  - DYSPNOEA [None]
  - HAEMATEMESIS [None]
  - OESOPHAGEAL PAIN [None]
  - PALLOR [None]
  - PRODUCT LABEL ISSUE [None]
